FAERS Safety Report 7967285 (Version 6)
Quarter: 2013Q4

REPORT INFORMATION
  Report Type: Spontaneous
  Country: US (occurrence: US)
  Receive Date: 20110531
  Receipt Date: 20131218
  Transmission Date: 20140711
  Serious: Yes (Other)
  Sender: FDA-Public Use
  Company Number: US-ASTRAZENECA-2010SE45015

PATIENT
  Age: 68 Year
  Sex: Female
  Weight: 69.4 kg

DRUGS (17)
  1. NEXIUM [Suspect]
     Indication: GASTROOESOPHAGEAL REFLUX DISEASE
     Route: 048
  2. NEXIUM [Suspect]
     Indication: GASTROOESOPHAGEAL REFLUX DISEASE
     Route: 048
  3. NEXIUM [Suspect]
     Indication: GASTROOESOPHAGEAL REFLUX DISEASE
     Route: 048
  4. NEXIUM [Suspect]
     Indication: GASTROOESOPHAGEAL REFLUX DISEASE
     Route: 048
  5. NEXIUM [Suspect]
     Indication: GASTROOESOPHAGEAL REFLUX DISEASE
     Route: 048
     Dates: end: 20131209
  6. NEXIUM [Suspect]
     Indication: GASTROOESOPHAGEAL REFLUX DISEASE
     Route: 048
     Dates: end: 20131209
  7. PRILOSEC [Suspect]
     Route: 048
  8. PRILOSEC OTC [Suspect]
     Indication: GASTROOESOPHAGEAL REFLUX DISEASE
     Route: 048
  9. ALEVE [Concomitant]
  10. PREDNISONE [Concomitant]
  11. PREVACID [Concomitant]
  12. XANAX [Concomitant]
  13. CYMBALTA [Concomitant]
     Indication: BACK PAIN
     Dosage: 60 MG AM AND 40 MG PM
     Dates: start: 2013
  14. FISH OIL [Concomitant]
  15. VITAMIN D [Concomitant]
  16. CALCIUM [Concomitant]
  17. ASA [Concomitant]

REACTIONS (23)
  - Convulsion [Unknown]
  - Renal failure acute [Unknown]
  - Aphasia [Unknown]
  - Aphagia [Unknown]
  - Chest pain [Unknown]
  - Wheezing [Unknown]
  - Chest discomfort [Unknown]
  - Pain [Unknown]
  - Gastrooesophageal reflux disease [Unknown]
  - Back disorder [Unknown]
  - Feeling abnormal [Unknown]
  - Throat irritation [Unknown]
  - Rheumatic disorder [Unknown]
  - Adverse event [Unknown]
  - Dyspepsia [Unknown]
  - Disorientation [Unknown]
  - Vomiting [Unknown]
  - Myalgia [Unknown]
  - Malaise [Unknown]
  - Drug ineffective [Unknown]
  - Off label use [Unknown]
  - Drug dose omission [Unknown]
  - Intentional drug misuse [Unknown]
